FAERS Safety Report 8524243-0 (Version None)
Quarter: 2012Q3

REPORT INFORMATION
  Report Type: 
  Country: None (occurrence: None)
  Receive Date: 20120720
  Receipt Date: 20120716
  Transmission Date: 20120928
  Serious: Yes (Other)
  Sender: FDA-Public Use
  Company Number: US-PFIZER INC-2010093727

PATIENT
  Sex: Female
  Weight: 77.098 kg

DRUGS (2)
  1. LYRICA [Suspect]
     Indication: FIBROMYALGIA
     Dosage: 100 MG, 2X/DAY
     Dates: start: 20050101
  2. EFFEXOR [Suspect]
     Indication: DEPRESSION
     Dosage: 2 X 75MG TABLETS DAILY
     Route: 048
     Dates: start: 20050101

REACTIONS (1)
  - NEOPLASM MALIGNANT [None]
